FAERS Safety Report 16044687 (Version 2)
Quarter: 2019Q1

REPORT INFORMATION
  Report Type: Spontaneous
  Country: TH (occurrence: TH)
  Receive Date: 20190306
  Receipt Date: 20190307
  Transmission Date: 20190418
  Serious: Yes (Hospitalization)
  Sender: FDA-Public Use
  Company Number: TH-ABBVIE-19S-155-2677888-00

PATIENT
  Age: 64 Year
  Sex: Female

DRUGS (3)
  1. DUODOPA [Suspect]
     Active Substance: CARBIDOPA\LEVODOPA
     Dosage: TO CONTINUOUS 16 HOURS
     Route: 050
     Dates: start: 2019, end: 2019
  2. DUODOPA [Suspect]
     Active Substance: CARBIDOPA\LEVODOPA
     Indication: PARKINSON^S DISEASE
     Dosage: MD 8.6MG AND CD 3.5MG/HR BETWEEN 6.00 TO 22.00.?(20MG/ML + 5MG/ML)
     Route: 050
     Dates: start: 20190103, end: 20190130
  3. DUODOPA [Suspect]
     Active Substance: CARBIDOPA\LEVODOPA
     Dosage: TO CONTINUOUS 16 HOURS
     Route: 050
     Dates: start: 2019, end: 2019

REACTIONS (2)
  - Psychiatric symptom [Recovered/Resolved with Sequelae]
  - Substance-induced psychotic disorder [Recovered/Resolved]

NARRATIVE: CASE EVENT DATE: 20190128
